FAERS Safety Report 26147064 (Version 1)
Quarter: 2025Q4

REPORT INFORMATION
  Report Type: Spontaneous
  Country: EU (occurrence: EU)
  Receive Date: 20251211
  Receipt Date: 20251211
  Transmission Date: 20260118
  Serious: Yes (Other)
  Sender: MYLAN
  Company Number: None

PATIENT
  Age: 62 Year
  Sex: Male

DRUGS (12)
  1. PANTOPRAZOLE [Suspect]
     Active Substance: PANTOPRAZOLE
     Indication: Gastrooesophageal reflux prophylaxis
     Dosage: 20 MILLIGRAM, QD
     Dates: start: 20251004, end: 20251009
  2. PANTOPRAZOLE [Suspect]
     Active Substance: PANTOPRAZOLE
     Dosage: 20 MILLIGRAM, QD
     Route: 048
     Dates: start: 20251004, end: 20251009
  3. PANTOPRAZOLE [Suspect]
     Active Substance: PANTOPRAZOLE
     Dosage: 20 MILLIGRAM, QD
     Route: 048
     Dates: start: 20251004, end: 20251009
  4. PANTOPRAZOLE [Suspect]
     Active Substance: PANTOPRAZOLE
     Dosage: 20 MILLIGRAM, QD
     Dates: start: 20251004, end: 20251009
  5. LOVENOX [Suspect]
     Active Substance: ENOXAPARIN SODIUM
     Indication: Vascular disorder prophylaxis
     Dosage: 1 DOSAGE FORM, QD (4000 IU ANTI-XA/0.4 ML, SOLUTION FOR INJECTION IN PRE-FILLED SYRINGE)
     Dates: start: 20251004, end: 20251009
  6. LOVENOX [Suspect]
     Active Substance: ENOXAPARIN SODIUM
     Dosage: 1 DOSAGE FORM, QD (4000 IU ANTI-XA/0.4 ML, SOLUTION FOR INJECTION IN PRE-FILLED SYRINGE)
     Route: 058
     Dates: start: 20251004, end: 20251009
  7. LOVENOX [Suspect]
     Active Substance: ENOXAPARIN SODIUM
     Dosage: 1 DOSAGE FORM, QD (4000 IU ANTI-XA/0.4 ML, SOLUTION FOR INJECTION IN PRE-FILLED SYRINGE)
     Route: 058
     Dates: start: 20251004, end: 20251009
  8. LOVENOX [Suspect]
     Active Substance: ENOXAPARIN SODIUM
     Dosage: 1 DOSAGE FORM, QD (4000 IU ANTI-XA/0.4 ML, SOLUTION FOR INJECTION IN PRE-FILLED SYRINGE)
     Dates: start: 20251004, end: 20251009
  9. DIAZEPAM [Suspect]
     Active Substance: DIAZEPAM
     Indication: Anxiety
     Dosage: 20 MILLIGRAM, QD
     Dates: start: 20251003, end: 20251009
  10. DIAZEPAM [Suspect]
     Active Substance: DIAZEPAM
     Dosage: 20 MILLIGRAM, QD
     Route: 048
     Dates: start: 20251003, end: 20251009
  11. DIAZEPAM [Suspect]
     Active Substance: DIAZEPAM
     Dosage: 20 MILLIGRAM, QD
     Route: 048
     Dates: start: 20251003, end: 20251009
  12. DIAZEPAM [Suspect]
     Active Substance: DIAZEPAM
     Dosage: 20 MILLIGRAM, QD
     Dates: start: 20251003, end: 20251009

REACTIONS (2)
  - Hepatic cytolysis [Recovering/Resolving]
  - Cholestasis [Recovering/Resolving]

NARRATIVE: CASE EVENT DATE: 20251006
